FAERS Safety Report 12685885 (Version 9)
Quarter: 2016Q4

REPORT INFORMATION
  Report Type: Spontaneous
  Country: IT (occurrence: IT)
  Receive Date: 20160825
  Receipt Date: 20161202
  Transmission Date: 20170207
  Serious: Yes (Other)
  Sender: FDA-Public Use
  Company Number: IT-BAUSCH-BL-2016-020236

PATIENT
  Age: 73 Year
  Sex: Female

DRUGS (5)
  1. ACETAZOLAMIDE. [Suspect]
     Active Substance: ACETAZOLAMIDE
     Indication: GLAUCOMA
     Route: 048
  2. TIMOPTOL 0.25% COLLIRIO, SOLUZIONE [Suspect]
     Active Substance: TIMOLOL
     Indication: GLAUCOMA
     Route: 065
  3. BRIMONIDINE TARTRATE. [Suspect]
     Active Substance: BRIMONIDINE TARTRATE
     Indication: GLAUCOMA
     Route: 061
  4. TRUSOPT [Suspect]
     Active Substance: DORZOLAMIDE HYDROCHLORIDE
     Indication: GLAUCOMA
     Route: 061
  5. BIMATOPROST. [Suspect]
     Active Substance: BIMATOPROST
     Indication: GLAUCOMA
     Route: 061

REACTIONS (5)
  - Conjunctival oedema [Unknown]
  - Diplopia [Unknown]
  - Arteriovenous fistula [Unknown]
  - Exophthalmos [Unknown]
  - Fistula [Unknown]
